FAERS Safety Report 17328146 (Version 1)
Quarter: 2020Q1

REPORT INFORMATION
  Report Type: Spontaneous
  Country: US (occurrence: US)
  Receive Date: 20200110
  Receipt Date: 20200110
  Transmission Date: 20200409
  Serious: Yes (Hospitalization)
  Sender: FDA-Public Use
  Company Number: None

PATIENT
  Sex: Female

DRUGS (6)
  1. EVOXAC [Concomitant]
     Active Substance: CEVIMELINE HYDROCHLORIDE
  2. PLAQUENIL [Concomitant]
     Active Substance: HYDROXYCHLOROQUINE SULFATE
  3. ENBREL [Suspect]
     Active Substance: ETANERCEPT
     Indication: RHEUMATOID ARTHRITIS
     Route: 058
     Dates: start: 20181219
  4. LYRICA [Concomitant]
     Active Substance: PREGABALIN
  5. SEROQUEL [Concomitant]
     Active Substance: QUETIAPINE FUMARATE
  6. ARAVA [Concomitant]
     Active Substance: LEFLUNOMIDE

REACTIONS (2)
  - Therapy cessation [None]
  - Hip arthroplasty [None]
